FAERS Safety Report 24073163 (Version 1)
Quarter: 2024Q3

REPORT INFORMATION
  Report Type: Spontaneous
  Country: US (occurrence: US)
  Receive Date: 20240710
  Receipt Date: 20240710
  Transmission Date: 20241017
  Serious: Yes (Other)
  Sender: PFIZER
  Company Number: US-PFIZER INC-202400209285

PATIENT
  Age: 53 Year
  Sex: Female
  Weight: 73.03 kg

DRUGS (3)
  1. PREMPRO [Suspect]
     Active Substance: ESTROGENS, CONJUGATED\MEDROXYPROGESTERONE ACETATE
     Indication: Hot flush
     Dosage: TAKES ONE TABLET EVERY NIGHT BY MOUTH
     Route: 048
     Dates: end: 20240625
  2. PREMPRO [Suspect]
     Active Substance: ESTROGENS, CONJUGATED\MEDROXYPROGESTERONE ACETATE
     Indication: Anxiety
     Dosage: 1 DF, 1X/DAY
     Route: 048
     Dates: start: 20240629, end: 20240629
  3. PREMPRO [Suspect]
     Active Substance: ESTROGENS, CONJUGATED\MEDROXYPROGESTERONE ACETATE
     Indication: Insomnia
     Dosage: TAKES ONE TABLET EVERY NIGHT BY MOUTH
     Route: 048
     Dates: start: 20240703

REACTIONS (8)
  - Cholelithiasis [Unknown]
  - Uterine haemorrhage [Recovered/Resolved]
  - Uterine polyp [Unknown]
  - Hepatic enzyme increased [Unknown]
  - Blood cholesterol increased [Unknown]
  - Uterine malposition [Unknown]
  - Uterine prolapse [Unknown]
  - Intentional product use issue [Unknown]

NARRATIVE: CASE EVENT DATE: 20240402
